FAERS Safety Report 6179213-7 (Version None)
Quarter: 2009Q2

REPORT INFORMATION
  Report Type: 
  Country: None (occurrence: None)
  Receive Date: 20090430
  Receipt Date: 20090416
  Transmission Date: 20091009
  Serious: Yes (Hospitalization)
  Sender: FDA-Public Use
  Company Number: APR200900151

PATIENT
  Sex: Male

DRUGS (4)
  1. DIPRIVAN [Suspect]
     Indication: BRONCHOSCOPY
     Dosage: ONCE
     Dates: start: 20090319, end: 20090319
  2. MIDAZOLAM HYDROCHLORIDE [Suspect]
     Indication: BRONCHOSCOPY
     Dates: start: 20090319, end: 20090319
  3. METHYLPREDNISOLONE [Suspect]
     Indication: HYPERSENSITIVITY
     Dosage: ONCE, TOPICAL
     Route: 061
     Dates: start: 20090319, end: 20090319
  4. LIDOCAINE [Suspect]
     Indication: ANAESTHESIA
     Dosage: ONCE, TOPICAL
     Route: 061
     Dates: start: 20090319, end: 20090319

REACTIONS (4)
  - AGITATION [None]
  - DELIRIUM [None]
  - DRUG HYPERSENSITIVITY [None]
  - PSYCHOTIC DISORDER [None]
